FAERS Safety Report 9238148 (Version 1)
Quarter: 2013Q2

REPORT INFORMATION
  Report Type: Spontaneous
  Country: US (occurrence: None)
  Receive Date: 20130415
  Receipt Date: 20130415
  Transmission Date: 20140414
  Serious: Yes (Other)
  Sender: FDA-Public Use
  Company Number: 7202063

PATIENT
  Age: 58 Year
  Sex: Female

DRUGS (4)
  1. THYROXIN [Suspect]
     Indication: PRODUCT USED FOR UNKNOWN INDICATION
     Dosage: 50 MCG, 1 IN 1 D?
  2. BUPROPION (BUPROPION) [Concomitant]
  3. VENLAFAXINE (VENLAFAXINE) [Concomitant]
  4. TOLTERODINE (TOLTERODINE) [Concomitant]

REACTIONS (10)
  - Parkinson^s disease [None]
  - Depression [None]
  - Activities of daily living impaired [None]
  - Depressed mood [None]
  - Crying [None]
  - Anhedonia [None]
  - Asthenia [None]
  - Disturbance in attention [None]
  - Insomnia [None]
  - Feeling of despair [None]
